FAERS Safety Report 13075594 (Version 4)
Quarter: 2018Q4

REPORT INFORMATION
  Report Type: Spontaneous
  Country: US (occurrence: US)
  Receive Date: 20161230
  Receipt Date: 20181213
  Transmission Date: 20190204
  Serious: Yes (Life-Threatening, Other)
  Sender: FDA-Public Use
  Company Number: US-ASTRAZENECA-2016SF36397

PATIENT
  Age: 63 Year
  Sex: Female
  Weight: 64.4 kg

DRUGS (123)
  1. NEXIUM [Suspect]
     Active Substance: ESOMEPRAZOLE MAGNESIUM
     Route: 048
     Dates: start: 2012
  2. NOVOLOG/FLEXPEN [Concomitant]
  3. CLOPIDOGREL [Concomitant]
     Active Substance: CLOPIDOGREL BISULFATE
     Route: 065
     Dates: start: 20151027
  4. LEVEMIR [Concomitant]
     Active Substance: INSULIN DETEMIR
  5. DIAZEPAM. [Concomitant]
     Active Substance: DIAZEPAM
     Route: 065
     Dates: start: 20070727, end: 20080922
  6. DIAZEPAM. [Concomitant]
     Active Substance: DIAZEPAM
     Route: 065
     Dates: start: 20090316
  7. CRESTOR [Concomitant]
     Active Substance: ROSUVASTATIN CALCIUM
     Route: 065
     Dates: start: 2009
  8. CRESTOR [Concomitant]
     Active Substance: ROSUVASTATIN CALCIUM
     Route: 065
     Dates: start: 2012
  9. DIOVAN [Concomitant]
     Active Substance: VALSARTAN
     Route: 065
     Dates: start: 2011
  10. DIOVAN [Concomitant]
     Active Substance: VALSARTAN
     Route: 065
     Dates: start: 2012
  11. FAMOTIDINE. [Concomitant]
     Active Substance: FAMOTIDINE
     Route: 065
     Dates: start: 2015
  12. HYDROCODONE [Concomitant]
     Active Substance: HYDROCODONE
     Dosage: 10/660
     Route: 065
     Dates: start: 2012
  13. HYDROCODONE [Concomitant]
     Active Substance: HYDROCODONE
     Dosage: 10/660
     Route: 065
     Dates: start: 2018
  14. BACLOFEN. [Concomitant]
     Active Substance: BACLOFEN
     Route: 065
     Dates: start: 2009
  15. VYTORIN [Concomitant]
     Active Substance: EZETIMIBE\SIMVASTATIN
     Dosage: 10/20 TAB
     Dates: start: 2007
  16. PRILOSEC [Suspect]
     Active Substance: OMEPRAZOLE MAGNESIUM
     Route: 048
  17. PRILOSEC [Suspect]
     Active Substance: OMEPRAZOLE MAGNESIUM
     Dosage: GENERIC
     Route: 065
     Dates: start: 20180222
  18. DIAZEPAM. [Concomitant]
     Active Substance: DIAZEPAM
     Route: 065
     Dates: start: 20070103, end: 20070629
  19. DIAZEPAM. [Concomitant]
     Active Substance: DIAZEPAM
     Route: 065
     Dates: start: 20081020, end: 20081120
  20. ATORVASTATIN [Concomitant]
     Active Substance: ATORVASTATIN
     Dates: start: 20151224
  21. SUCRALFATE. [Concomitant]
     Active Substance: SUCRALFATE
     Dates: start: 20160413
  22. DIOVAN [Concomitant]
     Active Substance: VALSARTAN
     Route: 065
     Dates: start: 2010
  23. HYDROCODONE [Concomitant]
     Active Substance: HYDROCODONE
     Dosage: 10/660
     Route: 065
     Dates: start: 2014
  24. TIZANIDINE. [Concomitant]
     Active Substance: TIZANIDINE
     Route: 065
     Dates: start: 2011
  25. ZYRTEC [Concomitant]
     Active Substance: CETIRIZINE HYDROCHLORIDE
     Dates: start: 2007
  26. NEXIUM [Suspect]
     Active Substance: ESOMEPRAZOLE MAGNESIUM
     Route: 048
     Dates: start: 2011
  27. PRILOSEC [Suspect]
     Active Substance: OMEPRAZOLE MAGNESIUM
     Dosage: GENERIC
     Route: 048
     Dates: start: 20180112
  28. PRILOSEC [Suspect]
     Active Substance: OMEPRAZOLE MAGNESIUM
     Dosage: GENERIC 20MG
     Route: 065
     Dates: start: 20160419
  29. PREVACID [Suspect]
     Active Substance: LANSOPRAZOLE
     Route: 065
     Dates: start: 20051229
  30. PEPCID [Suspect]
     Active Substance: FAMOTIDINE
     Route: 065
  31. VITAMIN D [Concomitant]
     Active Substance: CHOLECALCIFEROL
     Dates: start: 20160125
  32. TUMS [Concomitant]
     Active Substance: CALCIUM CARBONATE
  33. DIOVAN [Concomitant]
     Active Substance: VALSARTAN
     Route: 065
     Dates: start: 2005
  34. DIOVAN [Concomitant]
     Active Substance: VALSARTAN
     Route: 065
     Dates: start: 2013
  35. ESTRADIOL. [Concomitant]
     Active Substance: ESTRADIOL
     Route: 065
     Dates: start: 2013
  36. HYDROCODONE [Concomitant]
     Active Substance: HYDROCODONE
     Dosage: 10/660
     Route: 065
     Dates: start: 2012
  37. METOPROLOL. [Concomitant]
     Active Substance: METOPROLOL
     Route: 065
     Dates: start: 2012
  38. TIZANIDINE. [Concomitant]
     Active Substance: TIZANIDINE
     Route: 065
     Dates: start: 2018
  39. AMLODIPINE BESYLATE. [Concomitant]
     Active Substance: AMLODIPINE BESYLATE
     Dates: start: 2018
  40. SIMVASTATIN. [Concomitant]
     Active Substance: SIMVASTATIN
     Dates: start: 20070413
  41. NEXIUM [Suspect]
     Active Substance: ESOMEPRAZOLE MAGNESIUM
     Route: 048
     Dates: start: 2010
  42. NEXIUM [Suspect]
     Active Substance: ESOMEPRAZOLE MAGNESIUM
     Route: 048
     Dates: start: 2013
  43. PROTONIX [Suspect]
     Active Substance: PANTOPRAZOLE SODIUM
     Dosage: GENERIC
     Route: 065
     Dates: start: 20150805
  44. PREVACID [Suspect]
     Active Substance: LANSOPRAZOLE
     Route: 065
     Dates: start: 200712
  45. TAGAMET [Suspect]
     Active Substance: CIMETIDINE
     Route: 065
  46. DIAZEPAM. [Concomitant]
     Active Substance: DIAZEPAM
     Route: 065
     Dates: start: 20060712, end: 20061201
  47. NOVOLIN [Concomitant]
     Active Substance: INSULIN HUMAN
     Dates: start: 20150903
  48. DIOVAN [Concomitant]
     Active Substance: VALSARTAN
     Route: 065
     Dates: start: 2006
  49. FLUCONAZOLE. [Concomitant]
     Active Substance: FLUCONAZOLE
     Route: 065
     Dates: start: 2012
  50. HYDROCODONE [Concomitant]
     Active Substance: HYDROCODONE
     Dosage: 10/660
     Route: 065
     Dates: start: 2007
  51. HYDROCODONE [Concomitant]
     Active Substance: HYDROCODONE
     Dosage: 10/660
     Route: 065
     Dates: start: 2015
  52. NITROFURANTOIN. [Concomitant]
     Active Substance: NITROFURANTOIN
     Route: 065
     Dates: start: 2013
  53. ZETIA [Concomitant]
     Active Substance: EZETIMIBE
     Route: 065
     Dates: start: 2013
  54. ZETIA [Concomitant]
     Active Substance: EZETIMIBE
     Route: 065
     Dates: start: 2014
  55. ONDANSETRON [Concomitant]
     Active Substance: ONDANSETRON
     Route: 065
     Dates: start: 2018
  56. NEXIUM [Suspect]
     Active Substance: ESOMEPRAZOLE MAGNESIUM
     Route: 048
     Dates: start: 20151030, end: 20160216
  57. NEXIUM [Suspect]
     Active Substance: ESOMEPRAZOLE MAGNESIUM
     Dosage: GENERIC 40 MG
     Route: 048
     Dates: start: 20150903
  58. PRILOSEC [Suspect]
     Active Substance: OMEPRAZOLE MAGNESIUM
     Route: 048
     Dates: start: 20130404
  59. PROTONIX [Suspect]
     Active Substance: PANTOPRAZOLE SODIUM
     Route: 065
  60. PROTONIX [Suspect]
     Active Substance: PANTOPRAZOLE SODIUM
     Dosage: GENERIC
     Route: 065
     Dates: start: 20181026
  61. PREVACID [Suspect]
     Active Substance: LANSOPRAZOLE
     Route: 065
     Dates: start: 200812
  62. ZANTAC [Suspect]
     Active Substance: RANITIDINE HYDROCHLORIDE
     Route: 065
  63. METOCLOPRAMIDE. [Concomitant]
     Active Substance: METOCLOPRAMIDE
  64. HYDROCODONE-ACETAMINOPHEN [Concomitant]
     Active Substance: ACETAMINOPHEN\HYDROCODONE
     Dates: start: 20150903
  65. PROAIR/ VENTOLIN [Concomitant]
     Dates: start: 20150903
  66. DIOVAN [Concomitant]
     Active Substance: VALSARTAN
     Route: 065
     Dates: start: 2007
  67. DIOVAN [Concomitant]
     Active Substance: VALSARTAN
     Route: 065
     Dates: start: 2008
  68. ESTRADIOL. [Concomitant]
     Active Substance: ESTRADIOL
     Route: 065
     Dates: start: 2014
  69. FLUCONAZOLE. [Concomitant]
     Active Substance: FLUCONAZOLE
     Route: 065
     Dates: start: 2013
  70. HYDROCHLOROTHIAZIDE. [Concomitant]
     Active Substance: HYDROCHLOROTHIAZIDE
     Route: 065
     Dates: start: 2015
  71. HYDROCODONE [Concomitant]
     Active Substance: HYDROCODONE
     Dosage: 10/660
     Route: 065
     Dates: start: 2010
  72. HYDROCODONE [Concomitant]
     Active Substance: HYDROCODONE
     Dosage: 10/660
     Route: 065
     Dates: start: 2011
  73. LORATADINE. [Concomitant]
     Active Substance: LORATADINE
     Route: 065
     Dates: start: 2013
  74. LORATADINE. [Concomitant]
     Active Substance: LORATADINE
     Route: 065
     Dates: start: 2015
  75. AVELOX [Concomitant]
     Active Substance: MOXIFLOXACIN HYDROCHLORIDE
     Dates: start: 2007
  76. PRILOSEC [Suspect]
     Active Substance: OMEPRAZOLE MAGNESIUM
     Route: 048
     Dates: start: 20130501
  77. ALKA-SELTZER [Concomitant]
     Active Substance: ANHYDROUS CITRIC ACID\ASPIRIN\SODIUM BICARBONATE
  78. DIAZEPAM. [Concomitant]
     Active Substance: DIAZEPAM
     Route: 065
     Dates: start: 20070322, end: 20070601
  79. CRESTOR [Concomitant]
     Active Substance: ROSUVASTATIN CALCIUM
     Route: 065
     Dates: start: 2012
  80. ESTRADIOL. [Concomitant]
     Active Substance: ESTRADIOL
     Route: 065
     Dates: start: 2012
  81. ESTRADIOL. [Concomitant]
     Active Substance: ESTRADIOL
     Route: 065
     Dates: start: 2015
  82. HYDROCODONE [Concomitant]
     Active Substance: HYDROCODONE
     Dosage: 10/660
     Route: 065
     Dates: start: 2008
  83. HYDROCODONE [Concomitant]
     Active Substance: HYDROCODONE
     Dosage: 10/660
     Route: 065
     Dates: start: 2009
  84. LORATADINE. [Concomitant]
     Active Substance: LORATADINE
     Route: 065
     Dates: start: 2012
  85. TIZANIDINE. [Concomitant]
     Active Substance: TIZANIDINE
     Route: 065
     Dates: start: 2010
  86. NEXIUM [Suspect]
     Active Substance: ESOMEPRAZOLE MAGNESIUM
     Dosage: 40 MG
     Route: 048
     Dates: start: 20151001
  87. PREVACID [Suspect]
     Active Substance: LANSOPRAZOLE
     Route: 065
     Dates: start: 200912
  88. AMITRIPTYLINE [Concomitant]
     Active Substance: AMITRIPTYLINE
     Dates: start: 2018
  89. CLOPIDOGREL [Concomitant]
     Active Substance: CLOPIDOGREL BISULFATE
     Route: 065
     Dates: start: 2018
  90. FUROSEMIDE. [Concomitant]
     Active Substance: FUROSEMIDE
     Route: 065
     Dates: start: 2018
  91. LIDOCAINE. [Concomitant]
     Active Substance: LIDOCAINE
     Dates: start: 20100929
  92. DIAZEPAM. [Concomitant]
     Active Substance: DIAZEPAM
     Route: 065
     Dates: start: 20090107
  93. DIAZEPAM. [Concomitant]
     Active Substance: DIAZEPAM
     Route: 065
     Dates: start: 20090414, end: 20150805
  94. DIAZEPAM. [Concomitant]
     Active Substance: DIAZEPAM
     Route: 065
     Dates: start: 20150903
  95. CRESTOR [Concomitant]
     Active Substance: ROSUVASTATIN CALCIUM
     Route: 065
     Dates: start: 2011
  96. DIOVAN [Concomitant]
     Active Substance: VALSARTAN
     Route: 065
     Dates: start: 2014
  97. HYDROCODONE [Concomitant]
     Active Substance: HYDROCODONE
     Dosage: 10/660
     Route: 065
     Dates: start: 2013
  98. LOSARTAN. [Concomitant]
     Active Substance: LOSARTAN
     Route: 065
     Dates: start: 2015
  99. PRAVASTATIN. [Concomitant]
     Active Substance: PRAVASTATIN
     Route: 065
     Dates: start: 2014
  100. AZITHROMYCIN ANHYDROUS. [Concomitant]
     Active Substance: AZITHROMYCIN ANHYDROUS
     Route: 065
     Dates: start: 2018
  101. PREVACID [Suspect]
     Active Substance: LANSOPRAZOLE
     Route: 065
     Dates: start: 20061101
  102. PREVACID [Suspect]
     Active Substance: LANSOPRAZOLE
     Dosage: GENERIC
     Route: 065
  103. MOMETASONE [Concomitant]
     Active Substance: MOMETASONE
  104. ROSUVASTATIN. [Concomitant]
     Active Substance: ROSUVASTATIN
  105. DIAZEPAM. [Concomitant]
     Active Substance: DIAZEPAM
     Route: 065
     Dates: start: 20070825, end: 20071119
  106. ZOLPIDEM [Concomitant]
     Active Substance: ZOLPIDEM\ZOLPIDEM TARTRATE
     Dates: start: 20151127
  107. CRESTOR [Concomitant]
     Active Substance: ROSUVASTATIN CALCIUM
     Route: 065
     Dates: start: 2010
  108. CRESTOR [Concomitant]
     Active Substance: ROSUVASTATIN CALCIUM
     Route: 065
     Dates: start: 20160216
  109. MUPIROCIN. [Concomitant]
     Active Substance: MUPIROCIN
     Dates: start: 20160614
  110. CYMBALTA [Concomitant]
     Active Substance: DULOXETINE HYDROCHLORIDE
     Route: 065
     Dates: start: 2013
  111. DIOVAN [Concomitant]
     Active Substance: VALSARTAN
     Route: 065
     Dates: start: 2009
  112. FLUCONAZOLE. [Concomitant]
     Active Substance: FLUCONAZOLE
     Route: 065
     Dates: start: 2008
  113. FLUCONAZOLE. [Concomitant]
     Active Substance: FLUCONAZOLE
     Route: 065
     Dates: start: 2009
  114. FLUCONAZOLE. [Concomitant]
     Active Substance: FLUCONAZOLE
     Route: 065
     Dates: start: 2014
  115. HYDROCODONE [Concomitant]
     Active Substance: HYDROCODONE
     Dosage: 10/660
     Route: 065
     Dates: start: 2006
  116. LORATADINE. [Concomitant]
     Active Substance: LORATADINE
     Route: 065
     Dates: start: 2014
  117. METOPROLOL. [Concomitant]
     Active Substance: METOPROLOL
     Route: 065
     Dates: start: 2013
  118. METOPROLOL. [Concomitant]
     Active Substance: METOPROLOL
     Route: 065
     Dates: start: 2014
  119. MYRBETRIQ [Concomitant]
     Active Substance: MIRABEGRON
     Route: 065
     Dates: start: 2014
  120. TIZANIDINE. [Concomitant]
     Active Substance: TIZANIDINE
     Route: 065
     Dates: start: 2009
  121. TIZANIDINE. [Concomitant]
     Active Substance: TIZANIDINE
     Route: 065
     Dates: start: 2012
  122. ZETIA [Concomitant]
     Active Substance: EZETIMIBE
     Route: 065
     Dates: start: 2012
  123. CARISOPRODOL. [Concomitant]
     Active Substance: CARISOPRODOL
     Route: 065
     Dates: start: 2006

REACTIONS (7)
  - Renal failure [Not Recovered/Not Resolved]
  - Diabetic ketoacidosis [Unknown]
  - Chronic kidney disease [Unknown]
  - Anxiety [Unknown]
  - Polyp [Not Recovered/Not Resolved]
  - Renal injury [Unknown]
  - Depression [Unknown]

NARRATIVE: CASE EVENT DATE: 2013
